FAERS Safety Report 4674667-7 (Version None)
Quarter: 2005Q2

REPORT INFORMATION
  Report Type: 
  Country: None (occurrence: None)
  Receive Date: 20050526
  Receipt Date: 20050422
  Transmission Date: 20051028
  Serious: Yes (Life-Threatening)
  Sender: FDA-Public Use
  Company Number: JP-GLAXOSMITHKLINE-B0379154A

PATIENT
  Age: 1 Year
  Sex: Female
  Weight: 11 kg

DRUGS (3)
  1. MODACIN [Suspect]
     Indication: INFECTION
     Dosage: 1.2G PER DAY
     Route: 042
     Dates: start: 20020914, end: 20020921
  2. AMIKACIN SULFATE [Suspect]
     Indication: INFECTION
     Dosage: 70MG PER DAY
     Route: 042
     Dates: start: 20020911, end: 20020921
  3. ALBUMIN (HUMAN) [Concomitant]
     Route: 042

REACTIONS (4)
  - C-REACTIVE PROTEIN INCREASED [None]
  - DRUG ERUPTION [None]
  - GRANULOCYTOPENIA [None]
  - RASH [None]
